FAERS Safety Report 12719058 (Version 1)
Quarter: 2016Q3

REPORT INFORMATION
  Report Type: Other
  Country: PL (occurrence: PL)
  Receive Date: 20160907
  Receipt Date: 20160907
  Transmission Date: 20161109
  Serious: Yes (Hospitalization)
  Sender: FDA-Public Use
  Company Number: PL-FRI-1000087356

PATIENT
  Sex: 0

DRUGS (4)
  1. AZTREONAM. [Suspect]
     Active Substance: AZTREONAM
     Indication: SKIN INFECTION
  2. CEFTAROLINE FOSAMIL [Suspect]
     Active Substance: CEFTAROLINE FOSAMIL
     Indication: SKIN INFECTION
  3. VANCOMYCIN [Suspect]
     Active Substance: VANCOMYCIN
     Indication: SKIN INFECTION
  4. CEFAZOLIN [Suspect]
     Active Substance: CEFAZOLIN
     Indication: SKIN INFECTION

REACTIONS (1)
  - Osteomyelitis [Unknown]
